FAERS Safety Report 19386085 (Version 2)
Quarter: 2021Q3

REPORT INFORMATION
  Report Type: Spontaneous
  Country: US (occurrence: US)
  Receive Date: 20210608
  Receipt Date: 20210902
  Transmission Date: 20211014
  Serious: Yes (Hospitalization, Other)
  Sender: FDA-Public Use
  Company Number: US-LUPIN PHARMACEUTICALS INC.-2021-08885

PATIENT
  Age: 72 Year
  Sex: Female

DRUGS (1)
  1. POTASSIUM CHLORIDE. [Suspect]
     Active Substance: POTASSIUM CHLORIDE
     Indication: PRODUCT USED FOR UNKNOWN INDICATION
     Dosage: 1800 MILLIEQUIVALENT (SUSTAINED RELEASE TABLET)
     Route: 048

REACTIONS (5)
  - Ileus [Recovered/Resolved]
  - Electrocardiogram abnormal [Recovered/Resolved]
  - Intentional overdose [Unknown]
  - Hyperkalaemia [Recovered/Resolved]
  - Haemodynamic instability [Recovered/Resolved]
